FAERS Safety Report 14109560 (Version 1)
Quarter: 2017Q4

REPORT INFORMATION
  Report Type: Spontaneous
  Country: US (occurrence: US)
  Receive Date: 20171020
  Receipt Date: 20171020
  Transmission Date: 20180321
  Serious: No
  Sender: FDA-Public Use
  Company Number: US-TEVA-707357USA

PATIENT
  Sex: Male

DRUGS (1)
  1. AMOXICILLIN W/CLAVULANIC ACID [Suspect]
     Active Substance: AMOXICILLIN\CLAVULANIC ACID
     Dosage: 400 MG/57 MG

REACTIONS (4)
  - Tooth injury [Unknown]
  - Product expiration date issue [Unknown]
  - Product commingling [Unknown]
  - Intentional product misuse [Unknown]
